FAERS Safety Report 5351977-1 (Version None)
Quarter: 2007Q2

REPORT INFORMATION
  Report Type: 
  Country: None (occurrence: None)
  Receive Date: 20070611
  Receipt Date: 20070605
  Transmission Date: 20071010
  Serious: Yes (Death)
  Sender: FDA-Public Use
  Company Number: US-JNJFOC-20070601206

PATIENT
  Age: 50 Year
  Sex: Male
  Weight: 149.69 kg

DRUGS (2)
  1. REOPRO [Suspect]
     Dosage: UNSPECIFIED INFUSION
  2. REOPRO [Suspect]
     Indication: DRUG USE FOR UNKNOWN INDICATION
     Dosage: UNSPECIFIED BOLUS

REACTIONS (1)
  - HAEMORRHAGE INTRACRANIAL [None]
